FAERS Safety Report 18115250 (Version 1)
Quarter: 2020Q3

REPORT INFORMATION
  Report Type: Spontaneous
  Country: PT (occurrence: PT)
  Receive Date: 20200805
  Receipt Date: 20200805
  Transmission Date: 20201103
  Serious: Yes (Hospitalization, Other)
  Sender: FDA-Public Use
  Company Number: PT-SA-2020SA199181

PATIENT

DRUGS (9)
  1. FUROSEMIDE ACTAVIS [Concomitant]
     Dosage: 40 MG, QD
     Dates: start: 20101221, end: 20110315
  2. PERINDOPRIL ERBUMINE. [Suspect]
     Active Substance: PERINDOPRIL ERBUMINE
     Indication: HYPERTENSION
     Dosage: 8 MG, QD
     Route: 065
     Dates: start: 20080711
  3. PERINDOPRIL ERBUMINE. [Suspect]
     Active Substance: PERINDOPRIL ERBUMINE
     Indication: CARDIAC FAILURE
     Dosage: REDUCED DOSE
     Route: 065
  4. LANTUS [Concomitant]
     Active Substance: INSULIN GLARGINE
     Dosage: 1 DF, QD
     Dates: start: 20080711
  5. DRONEDARONE [Suspect]
     Active Substance: DRONEDARONE
     Indication: ARRHYTHMIA
     Dosage: 400 MG, BID
     Route: 065
     Dates: start: 20110105, end: 20110315
  6. NOVORAPID [Concomitant]
     Active Substance: INSULIN ASPART
     Dosage: 3 DF, QD
     Dates: start: 20100108
  7. ACENOCOUMAROL [Concomitant]
     Active Substance: ACENOCOUMAROL
     Indication: THROMBOSIS
     Dosage: ACCORDING TO THROMBOSIS SERVICE
     Dates: start: 20080711
  8. PAPAVERINE HYDROCHLORIDE;PHENTOLAMINE MESILATE [Concomitant]
     Dosage: UNK, PRN
     Dates: start: 20101110
  9. LIPITOR [Concomitant]
     Active Substance: ATORVASTATIN CALCIUM
     Dosage: 20 MG, QD
     Dates: start: 20050428, end: 20110315

REACTIONS (4)
  - Blood glucose abnormal [Not Recovered/Not Resolved]
  - Diarrhoea [Not Recovered/Not Resolved]
  - Hyperkalaemia [Not Recovered/Not Resolved]
  - Renal impairment [Not Recovered/Not Resolved]

NARRATIVE: CASE EVENT DATE: 201101
